FAERS Safety Report 16036849 (Version 3)
Quarter: 2020Q3

REPORT INFORMATION
  Report Type: Report from Study
  Country: US (occurrence: US)
  Receive Date: 20190305
  Receipt Date: 20200926
  Transmission Date: 20201102
  Serious: Yes (Other)
  Sender: FDA-Public Use
  Company Number: PHEH2019US009394

PATIENT
  Sex: Female

DRUGS (2)
  1. COSENTYX [Suspect]
     Active Substance: SECUKINUMAB
     Indication: OSTEOARTHRITIS
  2. COSENTYX [Suspect]
     Active Substance: SECUKINUMAB
     Indication: PSORIATIC ARTHROPATHY
     Dosage: 300 MG, QMO (150MG/ML X2)
     Route: 058
     Dates: start: 201812

REACTIONS (5)
  - Product use in unapproved indication [Unknown]
  - Device issue [Unknown]
  - Osteoarthritis [Recovering/Resolving]
  - Psoriatic arthropathy [Recovering/Resolving]
  - Accidental exposure to product [Unknown]
